FAERS Safety Report 17718298 (Version 4)
Quarter: 2020Q2

REPORT INFORMATION
  Report Type: Spontaneous
  Country: US (occurrence: US)
  Receive Date: 20200428
  Receipt Date: 20200605
  Transmission Date: 20200714
  Serious: No
  Sender: FDA-Public Use
  Company Number: US-ACTELION-A-US2020-204476

PATIENT
  Sex: Female
  Weight: 81.63 kg

DRUGS (4)
  1. REVATIO [Concomitant]
     Active Substance: SILDENAFIL CITRATE
  2. UPTRAVI [Suspect]
     Active Substance: SELEXIPAG
     Dosage: 400 MCG, BID
     Route: 048
  3. UPTRAVI [Suspect]
     Active Substance: SELEXIPAG
     Indication: PULMONARY ARTERIAL HYPERTENSION
     Dosage: 600 MCG
     Route: 048
  4. TYVASO [Suspect]
     Active Substance: TREPROSTINIL
     Indication: PRODUCT USED FOR UNKNOWN INDICATION
     Route: 065

REACTIONS (17)
  - Bone pain [Unknown]
  - Pain in extremity [Unknown]
  - Pruritus [Unknown]
  - Diarrhoea [Unknown]
  - Weight decreased [Unknown]
  - Rash [Unknown]
  - Abdominal pain upper [Recovering/Resolving]
  - Adverse reaction [Unknown]
  - Influenza like illness [Unknown]
  - Vomiting [Unknown]
  - Abdominal discomfort [Unknown]
  - Feeling of body temperature change [Unknown]
  - Headache [Unknown]
  - Feeling abnormal [Unknown]
  - Nervousness [Unknown]
  - Insomnia [Unknown]
  - Pain [Unknown]
